FAERS Safety Report 5162960-3 (Version None)
Quarter: 2006Q4

REPORT INFORMATION
  Report Type: 
  Country: None (occurrence: None)
  Receive Date: 20061201
  Receipt Date: 20060907
  Transmission Date: 20070319
  Serious: Yes (Hospitalization, Other)
  Sender: FDA-Public Use
  Company Number: GB-BRISTOL-MYERS SQUIBB COMPANY-13502596

PATIENT
  Age: 42 Year
  Sex: Female

DRUGS (3)
  1. ABILIFY [Suspect]
     Indication: SCHIZOAFFECTIVE DISORDER
     Dates: start: 20060701, end: 20060801
  2. SERTRALINE [Concomitant]
     Route: 048
     Dates: start: 19960101
  3. OLANZAPINE [Concomitant]

REACTIONS (2)
  - DELUSION [None]
  - PSYCHOTIC DISORDER [None]
